FAERS Safety Report 5752949-5 (Version None)
Quarter: 2008Q2

REPORT INFORMATION
  Report Type: 
  Country: None (occurrence: None)
  Receive Date: 20080527
  Receipt Date: 20080515
  Transmission Date: 20081010
  Serious: Yes (Other)
  Sender: FDA-Public Use
  Company Number: 028-20785-08050276

PATIENT
  Age: 49 Year
  Sex: Female

DRUGS (3)
  1. THALOMID [Suspect]
     Indication: MULTIPLE MYELOMA
     Dosage: 200 MG, QD, ORAL
     Route: 048
  2. PAMIDRONATE DISODIUM [Concomitant]
  3. DECADRON [Concomitant]

REACTIONS (1)
  - PREGNANCY TEST POSITIVE [None]
